FAERS Safety Report 16838689 (Version 1)
Quarter: 2019Q3

REPORT INFORMATION
  Report Type: Spontaneous
  Country: IT (occurrence: IT)
  Receive Date: 20190923
  Receipt Date: 20190923
  Transmission Date: 20191005
  Serious: Yes (Death)
  Sender: FDA-Public Use
  Company Number: IT-SA-2019SA262125

PATIENT
  Age: 89 Year
  Sex: Male

DRUGS (2)
  1. CLEXANE T [Suspect]
     Active Substance: ENOXAPARIN SODIUM
     Indication: ATRIAL FIBRILLATION
     Dosage: 12 KIU, QD
     Dates: start: 20190904, end: 20190911
  2. ACETYLSALICYLIC ACID [Suspect]
     Active Substance: ASPIRIN
     Indication: VASCULAR ENCEPHALOPATHY
     Dosage: 100 MG, QD
     Route: 048

REACTIONS (2)
  - Shock haemorrhagic [Fatal]
  - Erosive duodenitis [Fatal]

NARRATIVE: CASE EVENT DATE: 20190911
